FAERS Safety Report 9839320 (Version 1)
Quarter: 2014Q1

REPORT INFORMATION
  Report Type: Spontaneous
  Country: TR (occurrence: IL)
  Receive Date: 20140123
  Receipt Date: 20140123
  Transmission Date: 20141002
  Serious: Yes (Other)
  Sender: FDA-Public Use
  Company Number: IL-BAXTER-2014BAX003004

PATIENT
  Age: 10 Year
  Sex: Female

DRUGS (1)
  1. OSMITROL 20% INJ. (MANNITOL 20% INJ. USP) [Suspect]
     Indication: INTRACRANIAL PRESSURE INCREASED
     Route: 042

REACTIONS (2)
  - Extravasation [Recovered/Resolved]
  - Compartment syndrome [Recovered/Resolved]
